FAERS Safety Report 22285260 (Version 1)
Quarter: 2023Q2

REPORT INFORMATION
  Report Type: Spontaneous
  Country: US (occurrence: US)
  Receive Date: 20230504
  Receipt Date: 20230504
  Transmission Date: 20230722
  Serious: No
  Sender: FDA-Public Use
  Company Number: US-INSUD PHARMA-2304US02601

PATIENT

DRUGS (5)
  1. SLYND [Suspect]
     Active Substance: DROSPIRENONE
     Indication: Dysmenorrhoea
     Dosage: UNK
     Route: 048
  2. SLYND [Suspect]
     Active Substance: DROSPIRENONE
     Indication: Heavy menstrual bleeding
  3. EFFEXOR [Concomitant]
     Active Substance: VENLAFAXINE HYDROCHLORIDE
  4. ATIVAN [Concomitant]
     Active Substance: LORAZEPAM
     Dosage: UNK UNK, PRN
  5. TYLENOL [Concomitant]
     Active Substance: ACETAMINOPHEN

REACTIONS (3)
  - Malaise [Unknown]
  - Nausea [Unknown]
  - Intentional product use issue [Unknown]
